FAERS Safety Report 17004750 (Version 2)
Quarter: 2019Q4

REPORT INFORMATION
  Report Type: Spontaneous
  Country: US (occurrence: US)
  Receive Date: 20191107
  Receipt Date: 20191113
  Transmission Date: 20200122
  Serious: Yes (Other)
  Sender: FDA-Public Use
  Company Number: US-PFIZER INC-2019482517

PATIENT
  Age: 60 Year
  Sex: Female
  Weight: 66 kg

DRUGS (10)
  1. FLONASE [MOMETASONE FUROATE] [Concomitant]
     Active Substance: MOMETASONE FUROATE
     Indication: HYPERSENSITIVITY
     Dosage: UNK, DAILY [2 SQUIRTS IN EACH NOSTRIL]
     Route: 045
  2. CHANTIX [Suspect]
     Active Substance: VARENICLINE TARTRATE
     Indication: SMOKING CESSATION THERAPY
     Dosage: 0.5 MG, UNK
     Dates: start: 20190817
  3. ASMANEX [Concomitant]
     Active Substance: MOMETASONE FUROATE
     Indication: BLOOD PRESSURE MEASUREMENT
     Dosage: UNK UNK, DAILY (1-2 PUFFS DAILY)
  4. CHANTIX [Suspect]
     Active Substance: VARENICLINE TARTRATE
     Dosage: 1 MG, 2X/DAY
     Dates: end: 20190904
  5. ASMANEX [Concomitant]
     Active Substance: MOMETASONE FUROATE
     Indication: HYPERSENSITIVITY
  6. ALTACE [Concomitant]
     Active Substance: RAMIPRIL
     Indication: BLOOD PRESSURE MEASUREMENT
     Dosage: 1.25 MG, DAILY
  7. CHANTIX [Suspect]
     Active Substance: VARENICLINE TARTRATE
     Dosage: 0.5 MG, 2X/DAY
  8. CHANTIX [Suspect]
     Active Substance: VARENICLINE TARTRATE
     Dosage: 1 MG, 1X/DAY
     Dates: end: 20190904
  9. SYNTHROID [Concomitant]
     Active Substance: LEVOTHYROXINE SODIUM
     Indication: HYPOTHYROIDISM
     Dosage: 112 UG, 1X/DAY
  10. ALTACE [Concomitant]
     Active Substance: RAMIPRIL
     Indication: CARDIAC VALVE DISEASE

REACTIONS (11)
  - Emotional disorder [Unknown]
  - Memory impairment [Unknown]
  - Cognitive disorder [Unknown]
  - Decreased appetite [Unknown]
  - Vomiting [Recovered/Resolved]
  - Depressed mood [Unknown]
  - Weight decreased [Unknown]
  - Malaise [Unknown]
  - Asthenia [Recovering/Resolving]
  - Nausea [Unknown]
  - Chills [Unknown]

NARRATIVE: CASE EVENT DATE: 20190817
